FAERS Safety Report 10227896 (Version 1)
Quarter: 2014Q2

REPORT INFORMATION
  Report Type: Spontaneous
  Country: IT (occurrence: IT)
  Receive Date: 20140610
  Receipt Date: 20140610
  Transmission Date: 20141212
  Serious: Yes (Other)
  Sender: FDA-Public Use
  Company Number: IT-VERTEX PHARMACEUTICALS INC-2014-002650

PATIENT
  Age: 63 Year
  Sex: Male

DRUGS (4)
  1. LOSAZID [Concomitant]
     Indication: PRODUCT USED FOR UNKNOWN INDICATION
     Dosage: UNK
     Route: 048
  2. INCIVO [Suspect]
     Indication: HEPATIC CIRRHOSIS
     Dosage: 2250 MG, QD
     Route: 048
     Dates: start: 20140222, end: 20140428
  3. PEGINTRON [Suspect]
     Indication: HEPATIC CIRRHOSIS
     Dosage: 100 ?G, QW
     Route: 058
     Dates: start: 20140422, end: 20140428
  4. REBETOL [Suspect]
     Indication: HEPATIC CIRRHOSIS
     Dosage: 1000 MG, QD
     Route: 048
     Dates: start: 20140422, end: 20140428

REACTIONS (2)
  - Metabolic encephalopathy [Recovering/Resolving]
  - Psychomotor hyperactivity [Recovering/Resolving]
